FAERS Safety Report 6105740-4 (Version None)
Quarter: 2009Q1

REPORT INFORMATION
  Report Type: 
  Country: None (occurrence: None)
  Receive Date: 20090306
  Receipt Date: 20090303
  Transmission Date: 20090719
  Serious: Yes (Hospitalization)
  Sender: FDA-Public Use
  Company Number: US-JNJFOC-20090300938

PATIENT
  Age: 7 Month
  Weight: 7.71 kg

DRUGS (2)
  1. CONCENTRATED INFANT ACETAMINOPHEN [Suspect]
  2. CONCENTRATED INFANT ACETAMINOPHEN [Suspect]
     Indication: PYREXIA
     Dosage: 42.3 MG/KG/DOSE FOR A TOTAL OF 234 MG/KG/24 HOURS

REACTIONS (3)
  - ACCIDENTAL OVERDOSE [None]
  - HEPATOTOXICITY [None]
  - MEDICATION ERROR [None]
